FAERS Safety Report 17396818 (Version 1)
Quarter: 2020Q1

REPORT INFORMATION
  Report Type: Spontaneous
  Country: US (occurrence: US)
  Receive Date: 20200210
  Receipt Date: 20200210
  Transmission Date: 20200409
  Serious: No
  Sender: FDA-Public Use
  Company Number: US-PFIZER INC-2020053180

PATIENT
  Sex: Female

DRUGS (1)
  1. SIROLIMUS. [Suspect]
     Active Substance: SIROLIMUS
     Dosage: UNK

REACTIONS (2)
  - Nausea [Unknown]
  - Swelling face [Unknown]
